FAERS Safety Report 25646300 (Version 1)
Quarter: 2025Q3

REPORT INFORMATION
  Report Type: Spontaneous
  Country: TR (occurrence: TR)
  Receive Date: 20250805
  Receipt Date: 20250805
  Transmission Date: 20251021
  Serious: Yes (Death, Other)
  Sender: PFIZER
  Company Number: TR-PFIZER INC-PV202500093853

PATIENT
  Age: 50 Year
  Sex: Female

DRUGS (1)
  1. ELRANATAMAB [Suspect]
     Active Substance: ELRANATAMAB
     Indication: Plasma cell myeloma refractory

REACTIONS (3)
  - Infection [Fatal]
  - Plasma cell myeloma refractory [Unknown]
  - Malignant neoplasm progression [Unknown]
